FAERS Safety Report 24585411 (Version 2)
Quarter: 2024Q4

REPORT INFORMATION
  Report Type: Report from Study
  Country: DE (occurrence: DE)
  Receive Date: 20241106
  Receipt Date: 20241224
  Transmission Date: 20250115
  Serious: Yes (Other)
  Sender: NOVARTIS
  Company Number: DE-002147023-NVSC2024DE124092

PATIENT
  Age: 33 Year
  Sex: Male
  Weight: 97 kg

DRUGS (13)
  1. COSENTYX [Suspect]
     Active Substance: SECUKINUMAB
     Indication: Hidradenitis
     Dosage: 300 MG, ONCE/SINGLE
     Route: 058
     Dates: start: 20240319, end: 20240319
  2. COSENTYX [Suspect]
     Active Substance: SECUKINUMAB
     Dosage: 300 MG, ONCE/SINGLE (2 X 150 MG (IN TOTAL 300 MG))
     Route: 058
     Dates: start: 20240326, end: 20240326
  3. COSENTYX [Suspect]
     Active Substance: SECUKINUMAB
     Dosage: 300 MG, ONCE/SINGLE (2 X 150 MG (IN TOTAL 300 MG))
     Route: 058
     Dates: start: 20240402, end: 20240402
  4. COSENTYX [Suspect]
     Active Substance: SECUKINUMAB
     Dosage: 300 MG, ONCE/SINGLE (2 X 150 MG (IN TOTAL 300 MG))
     Route: 058
     Dates: start: 20240409, end: 20240409
  5. COSENTYX [Suspect]
     Active Substance: SECUKINUMAB
     Dosage: 300 MG, ONCE/SINGLE (2 X 150 MG (IN TOTAL 300 MG))
     Route: 058
     Dates: start: 20240416, end: 20240416
  6. COSENTYX [Suspect]
     Active Substance: SECUKINUMAB
     Dosage: 300 MG, ONCE/SINGLE (2 X 150 MG (IN TOTAL 300 MG))
     Route: 058
     Dates: start: 20240524, end: 20240524
  7. COSENTYX [Suspect]
     Active Substance: SECUKINUMAB
     Dosage: 300 MG, ONCE/SINGLE (2 X 150 MG (IN TOTAL 300 MG))
     Route: 058
     Dates: start: 20240619, end: 20240619
  8. COSENTYX [Suspect]
     Active Substance: SECUKINUMAB
     Dosage: 300 MG, ONCE/SINGLE (2 X 150 MG (IN TOTAL 300 MG))
     Route: 058
     Dates: start: 20240715, end: 20240715
  9. COSENTYX [Suspect]
     Active Substance: SECUKINUMAB
     Dosage: 300 MG, ONCE/SINGLE (2 X 150 MG (IN TOTAL 300 MG))
     Route: 058
     Dates: start: 20240810, end: 20240810
  10. COSENTYX [Suspect]
     Active Substance: SECUKINUMAB
     Dosage: 300 MG, ONCE/SINGLE (2 X 150 MG (IN TOTAL 300 MG))
     Route: 058
     Dates: start: 20240905, end: 20240905
  11. COSENTYX [Suspect]
     Active Substance: SECUKINUMAB
     Dosage: 300 MG
     Route: 058
     Dates: start: 20241003
  12. COSENTYX [Suspect]
     Active Substance: SECUKINUMAB
     Dosage: 300 MG
     Route: 058
     Dates: start: 20241031
  13. COSENTYX [Suspect]
     Active Substance: SECUKINUMAB
     Dosage: 300 MG
     Route: 058
     Dates: start: 20241128, end: 20241128

REACTIONS (3)
  - Skin mass [Not Recovered/Not Resolved]
  - Skin exfoliation [Recovering/Resolving]
  - Nodule [Not Recovered/Not Resolved]

NARRATIVE: CASE EVENT DATE: 20240426
